FAERS Safety Report 5266225-0 (Version None)
Quarter: 2007Q1

REPORT INFORMATION
  Report Type: 
  Country: None (occurrence: None)
  Receive Date: 20070315
  Receipt Date: 20070307
  Transmission Date: 20070707
  Serious: Yes (Other)
  Sender: FDA-Public Use
  Company Number: CH-GLAXOSMITHKLINE-B0460492A

PATIENT
  Age: 39 Year
  Sex: Male

DRUGS (7)
  1. COMBIVIR [Suspect]
     Indication: HIV INFECTION
     Dosage: 1TAB TWICE PER DAY
     Route: 048
     Dates: start: 20050209, end: 20070227
  2. KALETRA [Concomitant]
     Route: 065
  3. VIDEX [Concomitant]
     Route: 065
  4. METHADONE HCL [Concomitant]
     Dosage: 100MG PER DAY
     Route: 065
  5. VIREAD [Concomitant]
     Dosage: 245MG PER DAY
     Route: 065
  6. BACTRIM DS [Concomitant]
     Dosage: 1TAB SEE DOSAGE TEXT
     Route: 065
  7. XEFO [Concomitant]
     Route: 065

REACTIONS (10)
  - ANAEMIA MACROCYTIC [None]
  - HISTIOCYTOSIS HAEMATOPHAGIC [None]
  - HYPERCHROMIC ANAEMIA [None]
  - LYMPHOPENIA [None]
  - MEGAKARYOCYTES INCREASED [None]
  - MYELODYSPLASTIC SYNDROME [None]
  - PANCYTOPENIA [None]
  - SERUM FERRITIN INCREASED [None]
  - THROMBOCYTOPENIA [None]
  - TRANSAMINASES INCREASED [None]
